FAERS Safety Report 11010645 (Version 1)
Quarter: 2015Q2

REPORT INFORMATION
  Report Type: Spontaneous
  Country: US (occurrence: US)
  Receive Date: 20150410
  Receipt Date: 20150410
  Transmission Date: 20150821
  Serious: No
  Sender: FDA-Public Use
  Company Number: US-009507513-1504USA002085

PATIENT
  Age: 49 Year
  Sex: Female

DRUGS (5)
  1. DULERA [Suspect]
     Active Substance: FORMOTEROL FUMARATE DIHYDRATE\MOMETASONE FUROATE
     Indication: ASTHMA
     Dosage: THERAPY STARTED 3-4 YEARS AGO, 2 PUFFS TWICE PER DAY
     Route: 055
  2. BENADRYL [Concomitant]
     Active Substance: DIPHENHYDRAMINE HYDROCHLORIDE
  3. ALBUTEROL (+) IPRATROPIUM BROMIDE [Concomitant]
     Dosage: ALBUTEROL IPRATROPIUM WITH NEBULIZER
  4. PREDNISONE. [Concomitant]
     Active Substance: PREDNISONE
     Route: 048
  5. PROAIR HFA [Concomitant]
     Active Substance: ALBUTEROL SULFATE
     Dosage: INHALER

REACTIONS (4)
  - Product quality issue [Unknown]
  - Drug dose omission [Unknown]
  - Respiratory tract infection [Unknown]
  - Cough [Unknown]

NARRATIVE: CASE EVENT DATE: 20150330
